FAERS Safety Report 17213129 (Version 3)
Quarter: 2020Q1

REPORT INFORMATION
  Report Type: Spontaneous
  Country: US (occurrence: US)
  Receive Date: 20191230
  Receipt Date: 20200316
  Transmission Date: 20200409
  Serious: Yes (Other)
  Sender: FDA-Public Use
  Company Number: US-ACORDA-ACO_162924_2019

PATIENT
  Sex: Male
  Weight: 113.4 kg

DRUGS (6)
  1. PROTONIX [Concomitant]
     Active Substance: PANTOPRAZOLE SODIUM
     Indication: PRODUCT USED FOR UNKNOWN INDICATION
     Dosage: 40 MILLIGRAM, QD
     Route: 048
  2. AMPYRA [Suspect]
     Active Substance: DALFAMPRIDINE
     Indication: MULTIPLE SCLEROSIS
     Dosage: UNK
     Route: 065
  3. PROAIR HFA [Concomitant]
     Active Substance: ALBUTEROL SULFATE
     Indication: DYSPNOEA
     Dosage: 2 PUFFS BY MOUTH EVERY 6 HOURS
     Route: 065
  4. TYSABRI [Suspect]
     Active Substance: NATALIZUMAB
     Indication: MULTIPLE SCLEROSIS
     Dosage: 300 MILLIGRAM, 1 IN 4 WEEKS INFUSED OVER 1 HR
     Route: 042
  5. SINGULAIR [Concomitant]
     Active Substance: MONTELUKAST SODIUM
     Indication: PRODUCT USED FOR UNKNOWN INDICATION
     Dosage: 10 MILLIGRAM, QD
     Route: 048
  6. HYZAAR [Concomitant]
     Active Substance: HYDROCHLOROTHIAZIDE\LOSARTAN POTASSIUM
     Indication: PRODUCT USED FOR UNKNOWN INDICATION
     Dosage: 50 MG + 12.5 MG
     Route: 048

REACTIONS (50)
  - Congenital neuropathy [Unknown]
  - Neuritis [Unknown]
  - Dyskinesia [Unknown]
  - Saliva altered [Unknown]
  - Paraesthesia [Unknown]
  - Asthma [Unknown]
  - Hypersomnia [Unknown]
  - Essential hypertension [Unknown]
  - Blepharitis [Unknown]
  - Gait spastic [Unknown]
  - Dysphagia [Unknown]
  - Altered state of consciousness [Unknown]
  - Visual impairment [Unknown]
  - Osteoarthritis [Unknown]
  - Thoracic radiculopathy [Unknown]
  - Orthostatic hypotension [Unknown]
  - Dermatochalasis [Unknown]
  - Calculus urinary [Unknown]
  - Fatigue [Unknown]
  - Gastrooesophageal reflux disease [Unknown]
  - Myopia [Unknown]
  - Major depression [Unknown]
  - Deep vein thrombosis [Recovered/Resolved]
  - Psychotic disorder [Unknown]
  - Mental status changes [Unknown]
  - Rhinitis allergic [Unknown]
  - Benign prostatic hyperplasia [Unknown]
  - Lumbosacral radiculopathy [Unknown]
  - Vision blurred [Unknown]
  - Depression [Unknown]
  - Dizziness [Unknown]
  - Gait disturbance [Unknown]
  - Drug hypersensitivity [Unknown]
  - Chronic fatigue syndrome [Unknown]
  - Irritable bowel syndrome [Unknown]
  - Pain [Unknown]
  - Pain in extremity [Unknown]
  - Weight decreased [Unknown]
  - Asthenia [Unknown]
  - Headache [Unknown]
  - Eosinophilic oesophagitis [Unknown]
  - Sleep apnoea syndrome [Unknown]
  - Cataract nuclear [Unknown]
  - Poor quality sleep [Unknown]
  - Diplopia [Unknown]
  - Embolism [Unknown]
  - Nephrolithiasis [Unknown]
  - Macular fibrosis [Unknown]
  - Dyspepsia [Unknown]
  - Back pain [Unknown]
